FAERS Safety Report 22793056 (Version 6)
Quarter: 2023Q4

REPORT INFORMATION
  Report Type: Report from Study
  Country: MX (occurrence: MX)
  Receive Date: 20230807
  Receipt Date: 20231206
  Transmission Date: 20240110
  Serious: Yes (Other)
  Sender: FDA-Public Use
  Company Number: MX-002147023-NVSC2023MX150062

PATIENT
  Sex: Female
  Weight: 62 kg

DRUGS (2)
  1. KISQALI [Suspect]
     Active Substance: RIBOCICLIB
     Indication: Breast cancer
     Dosage: UNK
     Route: 048
  2. LETROZOLE [Suspect]
     Active Substance: LETROZOLE
     Indication: Product used for unknown indication
     Dosage: UNK (3 YEARS AGO)
     Route: 065

REACTIONS (43)
  - Colitis ulcerative [Unknown]
  - Arrhythmia [Unknown]
  - Metastasis [Unknown]
  - Stress [Unknown]
  - Chills [Unknown]
  - Anaemia [Unknown]
  - Constipation [Unknown]
  - Fatigue [Unknown]
  - Asthenia [Unknown]
  - Malaise [Unknown]
  - Eating disorder [Unknown]
  - Hypersomnia [Unknown]
  - Pain [Unknown]
  - Crying [Unknown]
  - Anger [Unknown]
  - Abdominal discomfort [Unknown]
  - Discomfort [Unknown]
  - Neoplasm [Unknown]
  - Drug intolerance [Unknown]
  - Emotional disorder [Unknown]
  - Feeling of despair [Unknown]
  - Depression [Recovering/Resolving]
  - Weight decreased [Unknown]
  - Gastritis [Unknown]
  - Throat irritation [Unknown]
  - Diarrhoea [Unknown]
  - Vertigo [Unknown]
  - Nausea [Unknown]
  - Dyspepsia [Unknown]
  - Emotional distress [Unknown]
  - Anxiety [Recovering/Resolving]
  - Tremor [Unknown]
  - Coordination abnormal [Unknown]
  - Movement disorder [Unknown]
  - Thinking abnormal [Unknown]
  - Depressed mood [Unknown]
  - Feeling cold [Unknown]
  - Hypoacusis [Unknown]
  - Heart rate decreased [Recovered/Resolved]
  - Thermal burn [Unknown]
  - Erythema [Unknown]
  - Blister [Unknown]
  - Pain in extremity [Unknown]
